FAERS Safety Report 13331051 (Version 1)
Quarter: 2017Q1

REPORT INFORMATION
  Report Type: Spontaneous
  Country: CA (occurrence: CA)
  Receive Date: 20170314
  Receipt Date: 20170314
  Transmission Date: 20170428
  Serious: Yes (Other)
  Sender: FDA-Public Use
  Company Number: CA-ASTRAZENECA-2017SE22663

PATIENT
  Age: 46 Year
  Sex: Female

DRUGS (1)
  1. BYDUREON [Suspect]
     Active Substance: EXENATIDE
     Indication: OVERWEIGHT
     Route: 065
     Dates: start: 201609

REACTIONS (5)
  - Tremor [Unknown]
  - Nausea [Recovered/Resolved]
  - Sedation [Unknown]
  - Device use error [Unknown]
  - Fatigue [Recovered/Resolved]
